FAERS Safety Report 8817532 (Version 1)
Quarter: 2012Q4

REPORT INFORMATION
  Report Type: 
  Country: US (occurrence: US)
  Receive Date: 20121004
  Receipt Date: 20121004
  Transmission Date: 20130627
  Serious: Yes (Hospitalization)
  Sender: FDA-Public Use
  Company Number: US-ROCHE-1083470

PATIENT
  Age: 48 Year
  Sex: Male

DRUGS (6)
  1. PEGASYS [Suspect]
     Indication: HEPATITIS C
     Route: 058
     Dates: start: 20120701, end: 20120923
  2. PEGASYS [Suspect]
     Indication: HIV INFECTION
  3. RIBAVIRIN [Suspect]
     Indication: HEPATITIS C
     Dosage: Divided doses: 600/400
     Route: 048
     Dates: start: 20120701, end: 20120923
  4. RIBAVIRIN [Suspect]
     Indication: HIV INFECTION
  5. TELAPREVIR [Suspect]
     Indication: HEPATITIS C
     Route: 065
     Dates: start: 20120701
  6. ATRIPLA [Concomitant]

REACTIONS (15)
  - Pain [Unknown]
  - Chills [Unknown]
  - Fatigue [Unknown]
  - Dry mouth [Unknown]
  - Oral mucosal erythema [Unknown]
  - Rash erythematous [Unknown]
  - Rash erythematous [Unknown]
  - Rash [Unknown]
  - Injection site erythema [Unknown]
  - Rash [Unknown]
  - T-lymphocyte count decreased [Unknown]
  - Dyspnoea [Unknown]
  - Pneumonia [Unknown]
  - White blood cell count decreased [Unknown]
  - Diarrhoea [Unknown]
